FAERS Safety Report 5893035-3 (Version None)
Quarter: 2008Q3

REPORT INFORMATION
  Report Type: 
  Country: None (occurrence: None)
  Receive Date: 20080923
  Receipt Date: 20070410
  Transmission Date: 20090109
  Serious: No
  Sender: FDA-Public Use
  Company Number: US-ASTRAZENECA-2007UW01900

PATIENT
  Age: 777 Month
  Sex: Male
  Weight: 97.3 kg

DRUGS (3)
  1. SEROQUEL [Suspect]
     Indication: BIPOLAR DISORDER
     Dosage: 100 MG TO 200 MG
     Route: 048
     Dates: start: 20030707, end: 20070101
  2. ZYPREXA [Concomitant]
     Dosage: 10 TO 15 MG
     Dates: start: 20000101, end: 20030101
  3. DEPAKOTE [Concomitant]
     Dates: start: 20000101, end: 20030101

REACTIONS (4)
  - BLOOD CHOLESTEROL INCREASED [None]
  - BLOOD TRIGLYCERIDES INCREASED [None]
  - IRRITABLE BOWEL SYNDROME [None]
  - TYPE 2 DIABETES MELLITUS [None]
